FAERS Safety Report 15311686 (Version 1)
Quarter: 2018Q3

REPORT INFORMATION
  Report Type: Spontaneous
  Country: US (occurrence: US)
  Receive Date: 20180814
  Receipt Date: 20180814
  Transmission Date: 20181010
  Serious: Yes (Disabling)
  Sender: FDA-Public Use
  Company Number: None

PATIENT
  Age: 78 Year
  Sex: Male
  Weight: 67.5 kg

DRUGS (8)
  1. VALSARTAN TABS 320 MG. GENERIC FOR: DIOVAN TABS. [Suspect]
     Active Substance: VALSARTAN
     Indication: HYPERTENSION
     Dosage: ?          QUANTITY:1 TABLET(S);?
     Route: 048
     Dates: start: 20180625, end: 20180720
  2. TOPROL XL [Concomitant]
     Active Substance: METOPROLOL SUCCINATE
  3. FISH OIL [Concomitant]
     Active Substance: FISH OIL
  4. TAMSULOSIN [Concomitant]
     Active Substance: TAMSULOSIN
  5. ALLOPURINAL [Concomitant]
     Active Substance: ALLOPURINOL
  6. MULTI?VITAMIN [Concomitant]
     Active Substance: .ALPHA.-TOCOPHEROL ACETATE, DL-\ASCORBIC ACID\CYANOCOBALAMIN\FLUORIDE ION\FOLIC ACID\NIACIN\PYRIDOXINE\RIBOFLAVIN\THIAMINE\VITAMIN A\VITAMIN D
  7. CALCIUM [Concomitant]
     Active Substance: CALCIUM
  8. ATORVASTATIN [Concomitant]
     Active Substance: ATORVASTATIN

REACTIONS (4)
  - Alopecia [None]
  - Back pain [None]
  - Arthralgia [None]
  - Rash macular [None]

NARRATIVE: CASE EVENT DATE: 20180701
